FAERS Safety Report 7870005-7 (Version None)
Quarter: 2011Q4

REPORT INFORMATION
  Report Type: 
  Country: None (occurrence: None)
  Receive Date: 20111028
  Receipt Date: 20111028
  Transmission Date: 20120403
  Serious: Yes (Death, Hospitalization)
  Sender: FDA-Public Use
  Company Number: None

PATIENT
  Sex: Female
  Weight: 42.9 kg

DRUGS (5)
  1. VINCRISTINE SULFATE [Suspect]
     Dosage: 8 MG
  2. CYTARABINE [Suspect]
     Dosage: 190 MG
  3. PEG-L-ASPARAGINASE (K-H) [Suspect]
     Dosage: 13400 MG
  4. PREDNISONE [Suspect]
     Dosage: 1515 MG
  5. DOXORUBICIN HCL [Suspect]
     Dosage: 80 MG

REACTIONS (22)
  - ARTERIAL THROMBOSIS LIMB [None]
  - ARTERIAL OCCLUSIVE DISEASE [None]
  - CONTINUOUS HAEMODIAFILTRATION [None]
  - PYREXIA [None]
  - WEIGHT INCREASED [None]
  - RESPIRATORY DISTRESS [None]
  - ACIDOSIS [None]
  - NEUTROPENIA [None]
  - ARTHRALGIA [None]
  - HYPOTENSION [None]
  - VENOUS THROMBOSIS LIMB [None]
  - POOR PERIPHERAL CIRCULATION [None]
  - BACK PAIN [None]
  - HYPERBILIRUBINAEMIA [None]
  - PERIPHERAL COLDNESS [None]
  - BLOOD LACTIC ACID INCREASED [None]
  - CONSTIPATION [None]
  - ABDOMINAL PAIN UPPER [None]
  - PNEUMONIA [None]
  - SEPSIS [None]
  - PULSE ABSENT [None]
  - HAEMODYNAMIC INSTABILITY [None]
